FAERS Safety Report 18993357 (Version 3)
Quarter: 2021Q4

REPORT INFORMATION
  Report Type: Spontaneous
  Country: US (occurrence: US)
  Receive Date: 20210310
  Receipt Date: 20211117
  Transmission Date: 20220303
  Serious: Yes (Other)
  Sender: FDA-Public Use
  Company Number: US-CHIESI-2021CHF01056

PATIENT
  Age: 5 Year
  Sex: Male

DRUGS (7)
  1. FERRIPROX [Suspect]
     Active Substance: DEFERIPRONE
     Indication: Thalassaemia beta
     Dosage: 1000 MILLIGRAM, QD
     Route: 048
     Dates: start: 20190219, end: 20190821
  2. FERRIPROX [Suspect]
     Active Substance: DEFERIPRONE
     Indication: Iron overload
     Dosage: 1000 MILLIGRAM, BID
     Route: 048
     Dates: start: 20181214, end: 20190209
  3. JADENU [Concomitant]
     Active Substance: DEFERASIROX
     Indication: Thalassaemia beta
     Dosage: 270 MILLIGRAM/KILOGRAM, BID
     Route: 048
     Dates: start: 20170411
  4. JADENU [Concomitant]
     Active Substance: DEFERASIROX
     Indication: Iron overload
  5. ZOFRAN [Concomitant]
     Active Substance: ONDANSETRON HYDROCHLORIDE
     Indication: Nausea
     Dosage: 2 MILLIGRAM, BID
     Route: 048
     Dates: start: 20181207
  6. VITAMINS NOS [Concomitant]
     Active Substance: VITAMINS
     Indication: Vitamin supplementation
     Dosage: 1 DOSAGE FORM, QD
     Route: 048
     Dates: start: 20180518
  7. MIRALAX [Concomitant]
     Active Substance: POLYETHYLENE GLYCOL 3350
     Indication: Constipation
     Dosage: 1 DOSAGE FORM, QD
     Route: 048
     Dates: start: 20180202

REACTIONS (1)
  - Neutropenia [Recovered/Resolved with Sequelae]

NARRATIVE: CASE EVENT DATE: 20190607
